FAERS Safety Report 5051764-8 (Version None)
Quarter: 2006Q3

REPORT INFORMATION
  Report Type: 
  Country: None (occurrence: None)
  Receive Date: 20060713
  Receipt Date: 20060713
  Transmission Date: 20061208
  Serious: Yes (Hospitalization)
  Sender: FDA-Public Use
  Company Number: None

PATIENT
  Age: 63 Year
  Sex: Female
  Weight: 76.2043 kg

DRUGS (6)
  1. DOCETAXEL [Suspect]
     Indication: BREAST CANCER
     Dosage: 75MG/M2 IV EVERY 2 WEEK
     Route: 042
     Dates: start: 20060523
  2. DOCETAXEL [Suspect]
     Indication: BREAST CANCER
     Dosage: 75MG/M2 IV EVERY 2 WEEK
     Route: 042
     Dates: start: 20060606
  3. DOCETAXEL [Suspect]
     Indication: BREAST CANCER
     Dosage: 75MG/M2 IV EVERY 2 WEEK
     Route: 042
     Dates: start: 20060620
  4. DOCETAXEL [Suspect]
     Indication: BREAST CANCER
     Dosage: 75MG/M2 IV EVERY 2 WEEK
     Route: 042
     Dates: start: 20060711
  5. NEULASTA [Concomitant]
  6. DEXAMETHASONE TAB [Concomitant]

REACTIONS (5)
  - DYSPNOEA [None]
  - DYSPNOEA EXERTIONAL [None]
  - HYPOXIA [None]
  - OXYGEN SATURATION DECREASED [None]
  - PYREXIA [None]
